FAERS Safety Report 7803608-6 (Version None)
Quarter: 2011Q4

REPORT INFORMATION
  Report Type: 
  Country: None (occurrence: None)
  Receive Date: 20111010
  Receipt Date: 20110926
  Transmission Date: 20120403
  Serious: Yes (Other)
  Sender: FDA-Public Use
  Company Number: ES-RANBAXY-2011RR-48602

PATIENT
  Age: 35 Year
  Sex: Female

DRUGS (1)
  1. ACETAMINOPHEN [Suspect]
     Indication: DYSMENORRHOEA
     Dosage: 650 MG, MONTHLY
     Route: 065

REACTIONS (1)
  - LIVER INJURY [None]
